FAERS Safety Report 4428184-X (Version None)
Quarter: 2004Q3

REPORT INFORMATION
  Report Type: 
  Country: None (occurrence: None)
  Receive Date: 20040726
  Receipt Date: 20040421
  Transmission Date: 20050211
  Serious: No
  Sender: FDA-Public Use
  Company Number: USA031050902

PATIENT
  Age: 79 Year
  Sex: Female

DRUGS (6)
  1. FORTEO [Suspect]
     Indication: OSTEOPOROSIS
     Dosage: 20 UG/ 1 DAY
     Dates: start: 20031022
  2. PREDNISONE [Concomitant]
  3. MORPHINE SULFATE [Concomitant]
  4. ACETAMINOPHEN [Concomitant]
  5. NORTRIPTYLINE HCL [Concomitant]
  6. BISOPROLOL FUMARATE [Concomitant]

REACTIONS (3)
  - BLOOD PRESSURE INCREASED [None]
  - INJECTION SITE HAEMORRHAGE [None]
  - NAUSEA [None]
